FAERS Safety Report 5360637-2 (Version None)
Quarter: 2007Q2

REPORT INFORMATION
  Report Type: 
  Country: None (occurrence: None)
  Receive Date: 20070530
  Receipt Date: 20070327
  Transmission Date: 20071010
  Serious: No
  Sender: FDA-Public Use
  Company Number: 2007PV032510

PATIENT
  Age: 76 Year
  Sex: Female
  Weight: 88.4514 kg

DRUGS (6)
  1. BYETTA [Suspect]
     Indication: DIABETES MELLITUS NON-INSULIN-DEPENDENT
     Dosage: 5 MCG; QD; SC, 5 MCG; BID; SC
     Route: 058
     Dates: start: 20070101, end: 20070201
  2. BYETTA [Suspect]
     Indication: DIABETES MELLITUS NON-INSULIN-DEPENDENT
     Dosage: 5 MCG; QD; SC, 5 MCG; BID; SC
     Route: 058
     Dates: start: 20070318, end: 20070318
  3. BYETTA [Suspect]
  4. METFORMIN HCL [Concomitant]
  5. DYAZIDE [Concomitant]
  6. GLIPIZIDE [Concomitant]

REACTIONS (3)
  - STRESS URINARY INCONTINENCE [None]
  - VOMITING [None]
  - WEIGHT DECREASED [None]
